FAERS Safety Report 10646201 (Version 1)
Quarter: 2014Q4

REPORT INFORMATION
  Report Type: Spontaneous
  Country: US (occurrence: US)
  Receive Date: 20141211
  Receipt Date: 20141211
  Transmission Date: 20150529
  Serious: No
  Sender: FDA-Public Use
  Company Number: US-TEVA-528558USA

PATIENT
  Age: 18 Year
  Sex: Female
  Weight: 61.29 kg

DRUGS (3)
  1. PLAN B ONE-STEP [Suspect]
     Active Substance: LEVONORGESTREL
     Dosage: 1.5 MILLIGRAM DAILY;
     Route: 048
     Dates: start: 20141207, end: 20141207
  2. CEFDINIR. [Concomitant]
     Active Substance: CEFDINIR
     Indication: PHARYNGITIS STREPTOCOCCAL
  3. PLAN B ONE-STEP [Suspect]
     Active Substance: LEVONORGESTREL
     Indication: POST COITAL CONTRACEPTION
     Dosage: 1.5 MILLIGRAM DAILY;
     Route: 048
     Dates: start: 20141109, end: 20141109

REACTIONS (3)
  - Nausea [Not Recovered/Not Resolved]
  - Menstruation delayed [Not Recovered/Not Resolved]
  - Vomiting [Not Recovered/Not Resolved]

NARRATIVE: CASE EVENT DATE: 201411
